FAERS Safety Report 24359151 (Version 1)
Quarter: 2024Q3

REPORT INFORMATION
  Report Type: Report from Study
  Country: CN (occurrence: CN)
  Receive Date: 20240924
  Receipt Date: 20240924
  Transmission Date: 20241017
  Serious: Yes (Hospitalization)
  Sender: Unknown Manufacturer
  Company Number: CN-ROCHE-3311852

PATIENT

DRUGS (3)
  1. PRALSETINIB [Suspect]
     Active Substance: PRALSETINIB
     Indication: Lung neoplasm malignant
     Dates: start: 20230115
  2. PRALSETINIB [Suspect]
     Active Substance: PRALSETINIB
  3. PRALSETINIB [Suspect]
     Active Substance: PRALSETINIB

REACTIONS (4)
  - Pneumonia [Recovering/Resolving]
  - Oedema [Recovered/Resolved]
  - White blood cell count decreased [Recovering/Resolving]
  - Haemoglobin decreased [Recovering/Resolving]

NARRATIVE: CASE EVENT DATE: 20230215
